FAERS Safety Report 8219259-8 (Version None)
Quarter: 2012Q1

REPORT INFORMATION
  Report Type: 
  Country: None (occurrence: None)
  Receive Date: 20120319
  Receipt Date: 20120306
  Transmission Date: 20120608
  Serious: Yes (Life-Threatening)
  Sender: FDA-Public Use
  Company Number: DE-ELI_LILLY_AND_COMPANY-DE201203001690

PATIENT
  Age: 49 Year
  Sex: Male

DRUGS (15)
  1. OLANZAPINE [Suspect]
     Dosage: 20 MG, QD
     Route: 048
     Dates: start: 20110914, end: 20110922
  2. LORAZEPAM [Concomitant]
     Dosage: 2 MG, QD
     Route: 048
     Dates: start: 20110917, end: 20110922
  3. LORAZEPAM [Concomitant]
     Dosage: 3 MG, QD
     Route: 048
     Dates: start: 20110915
  4. OLANZAPINE [Suspect]
     Dosage: 15 MG, QD
     Route: 048
     Dates: start: 20110923
  5. OLANZAPINE [Suspect]
     Dosage: 10 MG, QD
     Route: 048
     Dates: start: 20110911, end: 20110913
  6. PANTOPRAZOLE [Concomitant]
     Dosage: 20 MG, QD
     Route: 048
     Dates: start: 20110908
  7. LORAZEPAM [Concomitant]
     Dosage: 2.5 MG, QD
     Route: 048
     Dates: start: 20110911
  8. LORAZEPAM [Concomitant]
     Dosage: 4 MG, QD
     Route: 048
     Dates: start: 20110912, end: 20110914
  9. FOLIC ACID [Concomitant]
     Dosage: 5 MG, QD
     Route: 048
     Dates: start: 20110912
  10. LOSARTAN POTASSIUM [Concomitant]
     Dosage: 12.5 MG, QD
     Route: 048
     Dates: start: 20110928
  11. LORAZEPAM [Concomitant]
     Dosage: 1 MG, QD
     Route: 048
     Dates: start: 20110906, end: 20110901
  12. LORAZEPAM [Concomitant]
     Dosage: 2.5 MG, QD
     Route: 048
     Dates: start: 20110916
  13. LORAZEPAM [Concomitant]
     Dosage: 0.5 MG, QD
     Route: 048
     Dates: start: 20110927, end: 20110928
  14. LORAZEPAM [Concomitant]
     Dosage: 1.5 MG, QD
     Route: 048
     Dates: start: 20110923
  15. LORAZEPAM [Concomitant]
     Dosage: 1 MG, QD
     Route: 048
     Dates: start: 20110924, end: 20110929

REACTIONS (2)
  - PULMONARY EMBOLISM [None]
  - DEEP VEIN THROMBOSIS [None]
